FAERS Safety Report 7019696-3 (Version None)
Quarter: 2010Q3

REPORT INFORMATION
  Report Type: 
  Country: None (occurrence: None)
  Receive Date: 20100909
  Receipt Date: 20100522
  Transmission Date: 20110219
  Serious: No
  Sender: FDA-Public Use
  Company Number: 2010SP028511

PATIENT
  Age: 24 Year
  Sex: Male

DRUGS (6)
  1. SAPHRIS [Suspect]
     Indication: BIPOLAR DISORDER
     Dosage: 2 DF ; BID
     Dates: start: 20100524
  2. SAPHRIS [Suspect]
     Indication: PSYCHOTIC DISORDER
     Dosage: 2 DF ; BID
     Dates: start: 20100524
  3. SEROQUEL [Concomitant]
  4. DEPAKOTE [Concomitant]
  5. KLONOPIN [Concomitant]
  6. INVEGA [Concomitant]

REACTIONS (2)
  - INCORRECT DOSE ADMINISTERED [None]
  - MUSCLE TIGHTNESS [None]
